FAERS Safety Report 6626918-7 (Version None)
Quarter: 2010Q1

REPORT INFORMATION
  Report Type: 
  Country: None (occurrence: None)
  Receive Date: 20100308
  Receipt Date: 20100220
  Transmission Date: 20100710
  Serious: No
  Sender: FDA-Public Use
  Company Number: A-NJ2008-22941

PATIENT
  Age: 80 Year
  Sex: Female

DRUGS (4)
  1. VENTAVIS [Suspect]
     Indication: PULMONARY ARTERIAL HYPERTENSION
     Dosage: 5 UG, RESPIRATORY
     Route: 055
     Dates: start: 20081112, end: 20091101
  2. VENTAVIS [Suspect]
     Indication: PULMONARY ARTERIAL HYPERTENSION
     Dosage: 5 UG, RESPIRATORY
     Route: 055
     Dates: start: 20091228
  3. REVATIO [Concomitant]
  4. . [Concomitant]

REACTIONS (6)
  - BRONCHITIS [None]
  - DENTAL CARIES [None]
  - INCREASED UPPER AIRWAY SECRETION [None]
  - POSTNASAL DRIP [None]
  - STRESS URINARY INCONTINENCE [None]
  - URINARY TRACT INFECTION [None]
